FAERS Safety Report 9127356 (Version 1)
Quarter: 2013Q1

REPORT INFORMATION
  Report Type: Spontaneous
  Country: US (occurrence: US)
  Receive Date: 20130228
  Receipt Date: 20130228
  Transmission Date: 20140127
  Serious: No
  Sender: FDA-Public Use
  Company Number: US-GLAXOSMITHKLINE-A0971016A

PATIENT
  Age: 49 Year
  Sex: Female

DRUGS (3)
  1. LAMICTAL [Suspect]
     Indication: AFFECTIVE DISORDER
     Dosage: 150MG AT NIGHT
     Route: 048
  2. ALPRAZOLAM [Concomitant]
  3. CLONAZEPAM [Concomitant]

REACTIONS (1)
  - Menorrhagia [Recovered/Resolved]
